FAERS Safety Report 9914770 (Version 2)
Quarter: 2014Q1

REPORT INFORMATION
  Report Type: Spontaneous
  Country: DE (occurrence: DE)
  Receive Date: 20140220
  Receipt Date: 20140220
  Transmission Date: 20141002
  Serious: Yes (Disabling)
  Sender: FDA-Public Use
  Company Number: PHHY2013DE146787

PATIENT
  Sex: Female

DRUGS (10)
  1. ULTIBRO BREEZHALER [Suspect]
     Indication: CHRONIC OBSTRUCTIVE PULMONARY DISEASE
     Dosage: 1 DF, QD
     Route: 055
     Dates: start: 20131115, end: 20131122
  2. MAGNETRANS FORTE [Concomitant]
     Dosage: 1 DF, QD
  3. OMEP [Concomitant]
     Dosage: 1 DF, QD
  4. L-THYROXIN [Concomitant]
     Dosage: 1 DF, QD
  5. ASS [Concomitant]
     Dosage: 1 DF, QD
  6. BISOPROLOL [Concomitant]
     Dosage: 0.5 DF, QD
  7. AMLODIPIN ^ORIFARM^ [Concomitant]
     Dosage: 1 DF, QD
  8. SIMVA [Concomitant]
     Dosage: 1 DF, QD
  9. BLOPRESS PLUS [Concomitant]
     Dosage: 1 DF, QD
  10. EKLIRA GENUAIR [Concomitant]
     Dosage: 1 DF, BID

REACTIONS (4)
  - Nausea [Recovered/Resolved]
  - Hyperhidrosis [Recovered/Resolved]
  - Dizziness [Recovered/Resolved]
  - Visual impairment [Recovering/Resolving]
